FAERS Safety Report 5225706-6 (Version None)
Quarter: 2007Q1

REPORT INFORMATION
  Report Type: 
  Country: None (occurrence: None)
  Receive Date: 20070126
  Receipt Date: 20070116
  Transmission Date: 20070707
  Serious: Yes (Other)
  Sender: FDA-Public Use
  Company Number: FRWYE655027NOV06

PATIENT
  Age: 52 Year
  Sex: Female

DRUGS (6)
  1. EFFEXOR XR [Suspect]
     Indication: DEPRESSION
     Dosage: 150 MG TOTAL DAILY ORAL
     Route: 048
     Dates: start: 20061117, end: 20061117
  2. EFFEXOR [Suspect]
     Indication: DEPRESSION
     Dosage: SEE IMAGE
     Route: 048
     Dates: start: 20061102, end: 20061116
  3. EFFEXOR [Suspect]
     Indication: DEPRESSION
     Dosage: SEE IMAGE
     Route: 048
     Dates: start: 20061118, end: 20061118
  4. VERATRAN (CLOTIAZEPAM) [Concomitant]
  5. NOCTRAN 10 (ACEPROMAZINE/ACEPROMETAZINE/CLORAZEPATE DIPOTASSIUM) [Concomitant]
  6. LEVOTHYROXINE SODIUM [Concomitant]

REACTIONS (15)
  - CONVULSION [None]
  - DIARRHOEA [None]
  - DRUG INEFFECTIVE [None]
  - DYSPNOEA [None]
  - EPILEPSY [None]
  - GASTROINTESTINAL MOTILITY DISORDER [None]
  - GAZE PALSY [None]
  - LOSS OF CONSCIOUSNESS [None]
  - NAUSEA [None]
  - PARAESTHESIA [None]
  - PARAESTHESIA OF GENITAL FEMALE [None]
  - TACHYCARDIA [None]
  - TREMOR [None]
  - URINARY INCONTINENCE [None]
  - VOMITING [None]
